FAERS Safety Report 13663789 (Version 4)
Quarter: 2017Q3

REPORT INFORMATION
  Report Type: Report from Study
  Country: BE (occurrence: BE)
  Receive Date: 20170619
  Receipt Date: 20170904
  Transmission Date: 20171127
  Serious: Yes (Hospitalization)
  Sender: FDA-Public Use
  Company Number: BE-BEH-2017080673

PATIENT
  Age: 41 Year
  Sex: Female
  Weight: 118 kg

DRUGS (2)
  1. HIZENTRA [Suspect]
     Active Substance: HUMAN IMMUNOGLOBULIN G
     Dosage: 45 ML, UNK
     Route: 058
  2. HIZENTRA [Suspect]
     Active Substance: HUMAN IMMUNOGLOBULIN G
     Indication: PRODUCT USED FOR UNKNOWN INDICATION
     Dosage: 9 G, UNK
     Route: 058

REACTIONS (10)
  - Burning sensation [Unknown]
  - Injection site extravasation [Unknown]
  - Back disorder [Unknown]
  - Eye irritation [Unknown]
  - Injection site haemorrhage [Unknown]
  - Bronchitis [Unknown]
  - Injection site induration [Unknown]
  - Injection site mass [Unknown]
  - Fatigue [Unknown]
  - Pneumonia [Recovering/Resolving]

NARRATIVE: CASE EVENT DATE: 201705
